FAERS Safety Report 13169476 (Version 1)
Quarter: 2017Q1

REPORT INFORMATION
  Report Type: Spontaneous
  Country: US (occurrence: US)
  Receive Date: 20170131
  Receipt Date: 20170131
  Transmission Date: 20170428
  Serious: No
  Sender: FDA-Public Use
  Company Number: US-ABBVIE-16K-163-1604887-00

PATIENT
  Age: 50 Year

DRUGS (2)
  1. HUMIRA [Suspect]
     Active Substance: ADALIMUMAB
     Indication: PSORIASIS
     Route: 058
  2. ENBREL [Suspect]
     Active Substance: ETANERCEPT
     Indication: PSORIASIS
     Route: 065

REACTIONS (6)
  - Pharyngitis streptococcal [Unknown]
  - Emotional distress [Unknown]
  - Drug ineffective [Unknown]
  - Anxiety [Unknown]
  - Depression [Unknown]
  - Psoriasis [Not Recovered/Not Resolved]
